FAERS Safety Report 7269906-2 (Version None)
Quarter: 2011Q1

REPORT INFORMATION
  Report Type: 
  Country: None (occurrence: None)
  Receive Date: 20110202
  Receipt Date: 20110127
  Transmission Date: 20110831
  Serious: Yes (Other)
  Sender: FDA-Public Use
  Company Number: FR-SANOFI-AVENTIS-2010SA075759

PATIENT
  Age: 81 Year
  Sex: Male
  Weight: 60 kg

DRUGS (5)
  1. ZANIDIP [Concomitant]
     Route: 048
  2. ROSUVASTATIN CALCIUM [Concomitant]
     Route: 048
  3. ALISKIREN [Concomitant]
     Route: 048
  4. PLAVIX [Concomitant]
     Indication: PERIPHERAL ARTERIAL OCCLUSIVE DISEASE
     Route: 048
  5. MULTAQ [Suspect]
     Route: 048
     Dates: start: 20101108, end: 20101112

REACTIONS (4)
  - OEDEMA PERIPHERAL [None]
  - WEIGHT INCREASED [None]
  - DYSPNOEA [None]
  - CARDIAC FAILURE [None]
